FAERS Safety Report 4766181-5 (Version None)
Quarter: 2005Q3

REPORT INFORMATION
  Report Type: 
  Country: None (occurrence: None)
  Receive Date: 20050912
  Receipt Date: 20050907
  Transmission Date: 20060218
  Serious: Yes (Life-Threatening, Hospitalization)
  Sender: FDA-Public Use
  Company Number: US-BRISTOL-MYERS SQUIBB COMPANY-13102058

PATIENT
  Age: 64 Year
  Sex: Male

DRUGS (13)
  1. CARBOPLATIN [Suspect]
     Indication: NON-SMALL CELL LUNG CANCER METASTATIC
     Route: 042
     Dates: start: 20011010, end: 20011114
  2. CETUXIMAB [Suspect]
     Indication: NON-SMALL CELL LUNG CANCER METASTATIC
     Route: 042
     Dates: start: 20011114, end: 20011114
  3. GEMCITABINE [Suspect]
     Indication: NON-SMALL CELL LUNG CANCER METASTATIC
     Route: 042
     Dates: start: 20011010, end: 20011114
  4. TIKOSYN [Concomitant]
  5. COZAAR [Concomitant]
  6. LANOXIN [Concomitant]
  7. LOPID [Concomitant]
  8. TRIAMTERENE [Concomitant]
  9. COUMADIN [Concomitant]
  10. COUMADIN [Concomitant]
  11. FLOMAX [Concomitant]
  12. ZOCOR [Concomitant]
  13. DARVOCET [Concomitant]
     Indication: PAIN

REACTIONS (1)
  - PULMONARY EMBOLISM [None]
